FAERS Safety Report 6986015-8 (Version None)
Quarter: 2010Q3

REPORT INFORMATION
  Report Type: 
  Country: None (occurrence: None)
  Receive Date: 20100915
  Receipt Date: 20100907
  Transmission Date: 20110219
  Serious: Yes (Other)
  Sender: FDA-Public Use
  Company Number: FR-ABBOTT-10P-056-0669454-00

PATIENT
  Age: 45 Year
  Sex: Female

DRUGS (1)
  1. DEPAKOTE [Suspect]
     Indication: PRODUCT USED FOR UNKNOWN INDICATION
     Dosage: 5-500MG GASTRO-RESISTANT TABS DAILY
     Route: 048
     Dates: end: 20100101

REACTIONS (2)
  - DRUG DEPENDENCE [None]
  - FACTITIOUS DISORDER [None]
